FAERS Safety Report 18523294 (Version 1)
Quarter: 2020Q4

REPORT INFORMATION
  Report Type: Spontaneous
  Country: US (occurrence: US)
  Receive Date: 20201119
  Receipt Date: 20201119
  Transmission Date: 20210114
  Serious: No
  Sender: FDA-Public Use
  Company Number: US-MISSION PHARMACAL COMPANY-2096093

PATIENT
  Age: 43 Year
  Sex: Male

DRUGS (1)
  1. THIOLA EC [Suspect]
     Active Substance: TIOPRONIN
     Indication: CYSTINURIA
     Route: 048
     Dates: start: 20201112

REACTIONS (6)
  - Flushing [Unknown]
  - Nausea [Unknown]
  - Product dose omission issue [Unknown]
  - Erythema [Unknown]
  - Eye swelling [Unknown]
  - Drug hypersensitivity [None]
